FAERS Safety Report 22367010 (Version 1)
Quarter: 2023Q2

REPORT INFORMATION
  Report Type: Spontaneous
  Country: ES (occurrence: ES)
  Receive Date: 20230525
  Receipt Date: 20230525
  Transmission Date: 20230721
  Serious: Yes (Hospitalization)
  Sender: FDA-Public Use
  Company Number: None

PATIENT
  Age: 79 Year
  Sex: Male

DRUGS (1)
  1. FENTANYL [Suspect]
     Active Substance: FENTANYL
     Indication: Spinal cord injury cauda equina
     Dosage: 150 MICROGRAM, 1 TOTAL
     Route: 062
     Dates: start: 20230414, end: 20230416

REACTIONS (4)
  - Bronchospasm [Recovered/Resolved]
  - Hypotension [Recovered/Resolved]
  - Respiratory depression [Recovered/Resolved]
  - Accidental overdose [Recovered/Resolved]

NARRATIVE: CASE EVENT DATE: 20230416
